FAERS Safety Report 17028260 (Version 5)
Quarter: 2020Q2

REPORT INFORMATION
  Report Type: Report from Study
  Country: US (occurrence: US)
  Receive Date: 20191113
  Receipt Date: 20200529
  Transmission Date: 20200713
  Serious: Yes (Hospitalization, Other)
  Sender: FDA-Public Use
  Company Number: US-ACTELION-A-NJ2019-198043

PATIENT
  Age: 82 Year
  Sex: Female

DRUGS (1)
  1. OPSUMIT [Suspect]
     Active Substance: MACITENTAN
     Indication: PULMONARY ARTERIAL HYPERTENSION
     Dosage: 10 MG, QD
     Route: 048
     Dates: start: 20191023

REACTIONS (6)
  - Transfusion [Unknown]
  - Pneumonia [Unknown]
  - Oral infection [Unknown]
  - Cough [Not Recovered/Not Resolved]
  - Anaemia [Unknown]
  - Foot fracture [Unknown]

NARRATIVE: CASE EVENT DATE: 202004
